FAERS Safety Report 6421861-0 (Version None)
Quarter: 2009Q4

REPORT INFORMATION
  Report Type: 
  Country: None (occurrence: None)
  Receive Date: 20091030
  Receipt Date: 20091023
  Transmission Date: 20100525
  Serious: Yes (Other)
  Sender: FDA-Public Use
  Company Number: CHPA2009NO18983

PATIENT
  Sex: Female

DRUGS (2)
  1. OTRIVIN [Suspect]
     Indication: NASAL CONGESTION
     Dosage: 1 MG/ML, EVERY SECOND HOUR
     Route: 045
     Dates: start: 20070101
  2. NASONEX [Concomitant]

REACTIONS (2)
  - DRUG DEPENDENCE [None]
  - INTENTIONAL DRUG MISUSE [None]
